FAERS Safety Report 17793221 (Version 1)
Quarter: 2020Q2

REPORT INFORMATION
  Report Type: Report from Study
  Country: US (occurrence: US)
  Receive Date: 20200515
  Receipt Date: 20200515
  Transmission Date: 20200714
  Serious: Yes (Hospitalization)
  Sender: FDA-Public Use
  Company Number: US-VANDA PHARMACEUTICALS, INC-2020TASUS003878

PATIENT
  Age: 61 Year
  Sex: Female

DRUGS (1)
  1. HETLIOZ [Suspect]
     Active Substance: TASIMELTEON
     Indication: NON-24-HOUR SLEEP-WAKE DISORDER
     Dosage: 20 MG, QD, 1H BEFORE BEDTIME
     Route: 048
     Dates: start: 202003, end: 202004

REACTIONS (7)
  - Hallucination, visual [Unknown]
  - Hallucination [Unknown]
  - Nausea [Unknown]
  - Formication [Unknown]
  - Conversion disorder [Unknown]
  - Pain [Unknown]
  - Confusional state [Unknown]

NARRATIVE: CASE EVENT DATE: 20200324
